FAERS Safety Report 6724073-6 (Version None)
Quarter: 2010Q2

REPORT INFORMATION
  Report Type: 
  Country: None (occurrence: None)
  Receive Date: 20100513
  Receipt Date: 20100507
  Transmission Date: 20101027
  Serious: Yes (Hospitalization)
  Sender: FDA-Public Use
  Company Number: Z0004032A

PATIENT
  Sex: Female
  Weight: 43 kg

DRUGS (3)
  1. BLINDED TRIAL MEDICATION [Suspect]
     Route: 048
     Dates: start: 20091113
  2. AUGMENTIN '125' [Suspect]
     Indication: ABDOMINAL ABSCESS
     Dosage: 1000MG TWICE PER DAY
     Route: 048
     Dates: start: 20100313, end: 20100326
  3. ARICEPT [Concomitant]
     Route: 048
     Dates: start: 20090420

REACTIONS (1)
  - ABDOMINAL ABSCESS [None]
